FAERS Safety Report 6562952-3 (Version None)
Quarter: 2010Q1

REPORT INFORMATION
  Report Type: 
  Country: None (occurrence: None)
  Receive Date: 20100130
  Receipt Date: 20091215
  Transmission Date: 20100710
  Serious: No
  Sender: FDA-Public Use
  Company Number: US-ABBOTT-09P-163-0611561-00

PATIENT
  Sex: Female
  Weight: 93.07 kg

DRUGS (6)
  1. HUMIRA [Suspect]
     Indication: ARTHRITIS ENTEROPATHIC
     Dates: start: 20070501, end: 20090901
  2. HUMIRA [Suspect]
     Indication: CROHN'S DISEASE
     Dates: end: 20091001
  3. SINGULAIR [Concomitant]
     Indication: ASTHMA
  4. METHOTREXATE [Concomitant]
     Indication: CROHN'S DISEASE
  5. LIALDA [Concomitant]
     Indication: CROHN'S DISEASE
  6. UNKNOWN INHALERS [Concomitant]
     Indication: ASTHMA

REACTIONS (4)
  - CHEST DISCOMFORT [None]
  - COUGH [None]
  - DYSPNOEA [None]
  - RASH [None]
